FAERS Safety Report 23237848 (Version 2)
Quarter: 2023Q4

REPORT INFORMATION
  Report Type: Report from Study
  Country: FR (occurrence: FR)
  Receive Date: 20231128
  Receipt Date: 20231213
  Transmission Date: 20240109
  Serious: Yes (Hospitalization)
  Sender: FDA-Public Use
  Company Number: FR-JAZZ PHARMACEUTICALS-2023-FR-021552

PATIENT

DRUGS (8)
  1. EPIDIOLEX [Suspect]
     Active Substance: CANNABIDIOL
     Indication: Lennox-Gastaut syndrome
     Dosage: 2.5 MILLIGRAM/KILOGRAM, QD, AS A STARTING DOSE
  2. EPIDIOLEX [Suspect]
     Active Substance: CANNABIDIOL
     Dosage: 15 MILLIGRAM/KILOGRAM/DAY
  3. EPIDIOLEX [Suspect]
     Active Substance: CANNABIDIOL
     Dosage: 190 MILLIGRAM, BID
     Dates: start: 20230515, end: 20230906
  4. EPIDIOLEX [Suspect]
     Active Substance: CANNABIDIOL
     Dosage: 10 MILLIGRAM/KILOGRAM/DAY
     Dates: start: 20230607
  5. EPIDIOLEX [Suspect]
     Active Substance: CANNABIDIOL
     Dosage: UNK
     Dates: end: 20230908
  6. LAMOTRIGINE [Concomitant]
     Active Substance: LAMOTRIGINE
     Indication: Product used for unknown indication
     Dosage: 85 MG-0-85 MG
  7. VALPROIC ACID [Concomitant]
     Active Substance: VALPROIC ACID
     Indication: Product used for unknown indication
  8. LIVOGEN [SACCHARATED IRON OXIDE] [Concomitant]
     Indication: Product used for unknown indication

REACTIONS (1)
  - Hyperammonaemia [Recovered/Resolved]
